FAERS Safety Report 24150827 (Version 2)
Quarter: 2024Q3

REPORT INFORMATION
  Report Type: Spontaneous
  Country: DE (occurrence: DE)
  Receive Date: 20240730
  Receipt Date: 20240809
  Transmission Date: 20241016
  Serious: Yes (Death, Hospitalization, Other)
  Sender: TEVA
  Company Number: None

PATIENT
  Age: 67 Year
  Sex: Female
  Weight: 85 kg

DRUGS (2)
  1. PREGABALIN [Suspect]
     Active Substance: PREGABALIN
     Indication: Spinal stenosis
     Dosage: 2X75 MG/D
     Route: 048
     Dates: start: 202403, end: 20240627
  2. Tilidine Naloxone [Concomitant]
     Indication: Pain
     Route: 065

REACTIONS (5)
  - Cardiopulmonary failure [Fatal]
  - Syncope [Unknown]
  - Obstructive airways disorder [Unknown]
  - Cardio-respiratory arrest [Unknown]
  - Sudden death [Fatal]

NARRATIVE: CASE EVENT DATE: 20240401
